FAERS Safety Report 6570095-8 (Version None)
Quarter: 2010Q1

REPORT INFORMATION
  Report Type: 
  Country: None (occurrence: None)
  Receive Date: 20100204
  Receipt Date: 20100128
  Transmission Date: 20100710
  Serious: Yes (Hospitalization)
  Sender: FDA-Public Use
  Company Number: JP-B.I. PHARMACEUTICALS,INC./RIDGEFIELD-2010-BP-01063NB

PATIENT
  Age: 74 Year
  Sex: Female

DRUGS (4)
  1. MOBIC [Suspect]
     Indication: ANALGESIC THERAPY
     Dosage: 10 MG
     Route: 048
     Dates: start: 20090514, end: 20090605
  2. TIZANIDINE HCL [Suspect]
     Indication: MUSCLE TIGHTNESS
     Dosage: 1 MG
     Route: 048
     Dates: start: 20090514, end: 20090605
  3. MUCOSTA [Concomitant]
     Dosage: 1 DF
     Route: 048
     Dates: start: 20090514, end: 20090605
  4. SELTOUCH [Concomitant]
     Route: 062
     Dates: start: 20090514, end: 20090605

REACTIONS (1)
  - RHABDOMYOLYSIS [None]
